FAERS Safety Report 4615811-7 (Version None)
Quarter: 2005Q2

REPORT INFORMATION
  Report Type: 
  Country: None (occurrence: None)
  Receive Date: 20050310
  Receipt Date: 20040316
  Transmission Date: 20051028
  Serious: Yes (Hospitalization)
  Sender: FDA-Public Use
  Company Number: 04-0020NI

PATIENT
  Age: 56 Year
  Sex: Male

DRUGS (9)
  1. NITROLINGUAL PUMPSPRAY [Suspect]
     Indication: ANGINA PECTORIS
     Dosage: QID, PRN, PO
     Route: 048
  2. NITROLINGUAL PUMPSPRAY [Suspect]
     Indication: CARDIAC DISORDER
     Dosage: QID, PRN, PO
     Route: 048
  3. ROBAXIN [Concomitant]
  4. PREDNISONE TAB [Concomitant]
  5. VALIUM [Concomitant]
  6. OXYCONTIN-2 [Concomitant]
  7. NORVASC [Concomitant]
  8. SYNTHROID [Concomitant]
  9. CELEXA [Concomitant]

REACTIONS (1)
  - DRUG INEFFECTIVE [None]
